FAERS Safety Report 5340863-9 (Version None)
Quarter: 2007Q2

REPORT INFORMATION
  Report Type: 
  Country: None (occurrence: None)
  Receive Date: 20070405
  Receipt Date: 20061116
  Transmission Date: 20071010
  Serious: No
  Sender: FDA-Public Use
  Company Number: US200611003228

PATIENT
  Sex: Female

DRUGS (1)
  1. CYMBALTA [Suspect]
     Indication: DEPRESSION
     Dosage: 30 MG, DAILY (1/.D),
     Dates: start: 20061109

REACTIONS (5)
  - CHEST DISCOMFORT [None]
  - DIARRHOEA [None]
  - DYSPNOEA [None]
  - INSOMNIA [None]
  - NAUSEA [None]
